FAERS Safety Report 4842384-6 (Version None)
Quarter: 2005Q4

REPORT INFORMATION
  Report Type: 
  Country: None (occurrence: None)
  Receive Date: 20051125
  Receipt Date: 20051113
  Transmission Date: 20060501
  Serious: Yes (Other)
  Sender: FDA-Public Use
  Company Number: 2005154748

PATIENT
  Age: 77 Year
  Sex: Male
  Weight: 73.4827 kg

DRUGS (3)
  1. LYRICA [Suspect]
     Indication: PAIN
     Dosage: 150 MG (75 MG, 2 IN 1 D), ORAL
     Route: 048
     Dates: start: 20051109, end: 20051112
  2. BENICAR [Concomitant]
  3. CRESTOR [Concomitant]

REACTIONS (5)
  - BURNING SENSATION [None]
  - CONVULSION [None]
  - FACIAL PAIN [None]
  - HYPOAESTHESIA [None]
  - WEIGHT DECREASED [None]
